FAERS Safety Report 6091396-6 (Version None)
Quarter: 2009Q1

REPORT INFORMATION
  Report Type: 
  Country: None (occurrence: None)
  Receive Date: 20090225
  Receipt Date: 20081216
  Transmission Date: 20090719
  Serious: No
  Sender: FDA-Public Use
  Company Number: A0760620A

PATIENT
  Age: 26 Year
  Sex: Female

DRUGS (1)
  1. VERAMYST [Suspect]

REACTIONS (1)
  - EPISTAXIS [None]
